FAERS Safety Report 23410623 (Version 1)
Quarter: 2024Q1

REPORT INFORMATION
  Report Type: Spontaneous
  Country: CH (occurrence: CH)
  Receive Date: 20240117
  Receipt Date: 20240117
  Transmission Date: 20240410
  Serious: Yes (Life-Threatening, Hospitalization)
  Sender: FDA-Public Use
  Company Number: CH-FreseniusKabi-FK202400617

PATIENT
  Age: 85 Year
  Sex: Male
  Weight: 84 kg

DRUGS (19)
  1. REMIFENTANIL HYDROCHLORIDE [Suspect]
     Active Substance: REMIFENTANIL HYDROCHLORIDE
     Indication: General anaesthesia
     Route: 042
     Dates: start: 20231018, end: 20231018
  2. PROPOFOL [Suspect]
     Active Substance: PROPOFOL
     Indication: General anaesthesia
     Route: 042
     Dates: start: 20231018, end: 20231018
  3. CEFUROXIME [Suspect]
     Active Substance: CEFUROXIME
     Indication: Antibiotic prophylaxis
     Dosage: 2X 1.5 G (7:50 AND 13:55)
     Route: 042
     Dates: start: 20231018, end: 20231018
  4. IOMERON [Suspect]
     Active Substance: IOMEPROL
     Indication: Angiogram
     Route: 042
     Dates: start: 20231018, end: 20231018
  5. ATRACURIUM [Suspect]
     Active Substance: ATRACURIUM
     Indication: General anaesthesia
     Route: 042
     Dates: start: 20231018, end: 20231018
  6. DEXAMETHASONE [Suspect]
     Active Substance: DEXAMETHASONE
     Indication: General anaesthesia
     Dosage: IN TOTAL
     Route: 042
     Dates: start: 20231018, end: 20231018
  7. FENTANYL [Suspect]
     Active Substance: FENTANYL\FENTANYL CITRATE
     Indication: General anaesthesia
     Dosage: 9 X 0.1 MG
     Route: 042
     Dates: start: 20231018, end: 20231018
  8. HEPARIN [Suspect]
     Active Substance: HEPARIN SODIUM
     Indication: General anaesthesia
     Dosage: 1.25 X 7500 IU
     Route: 042
     Dates: start: 20231018, end: 20231018
  9. KETAMIN [Suspect]
     Active Substance: KETAMINE
     Indication: General anaesthesia
     Dosage: 1.8 X 40 MG
     Route: 042
     Dates: start: 20231018, end: 20231018
  10. MORPHINE [Suspect]
     Active Substance: MORPHINE
     Indication: General anaesthesia
     Dosage: IN TOTAL
     Route: 042
     Dates: start: 20231018, end: 20231018
  11. ASPIRIN [Concomitant]
     Active Substance: ASPIRIN
     Indication: Product used for unknown indication
     Route: 048
  12. ACITRETIN [Concomitant]
     Active Substance: ACITRETIN
     Indication: Product used for unknown indication
     Route: 048
  13. VALSARTAN [Concomitant]
     Active Substance: VALSARTAN
     Indication: Product used for unknown indication
     Route: 048
     Dates: end: 20231018
  14. VALSARTAN [Concomitant]
     Active Substance: VALSARTAN
     Route: 048
     Dates: start: 20231021, end: 20231101
  15. ATORVASTATIN [Concomitant]
     Active Substance: ATORVASTATIN
     Indication: Product used for unknown indication
     Route: 048
     Dates: start: 20231021, end: 20231101
  16. NOREPINEPHRINE\NOREPINEPHRINE BITARTRATE [Concomitant]
     Active Substance: NOREPINEPHRINE\NOREPINEPHRINE BITARTRATE
     Indication: General anaesthesia
     Route: 042
     Dates: start: 20231018, end: 20231018
  17. EPHEDRINE [Concomitant]
     Active Substance: EPHEDRINE
     Indication: General anaesthesia
     Dosage: 2 X 6 MG
     Route: 042
     Dates: start: 20231018, end: 20231018
  18. Ringer Acetat [Concomitant]
     Indication: General anaesthesia
     Dosage: 6X 1000 ML
     Route: 042
     Dates: start: 20231018, end: 20231018
  19. Ringer Lactat [Concomitant]
     Indication: General anaesthesia
     Dosage: 5 X 1000 ML
     Route: 042
     Dates: start: 20231018, end: 20231018

REACTIONS (2)
  - Anaphylactic shock [Recovering/Resolving]
  - Hypokalaemia [Unknown]

NARRATIVE: CASE EVENT DATE: 20231018
